FAERS Safety Report 6232026-X (Version None)
Quarter: 2009Q2

REPORT INFORMATION
  Report Type: 
  Country: None (occurrence: None)
  Receive Date: 20090612
  Receipt Date: 20090601
  Transmission Date: 20091009
  Serious: Yes (Hospitalization)
  Sender: FDA-Public Use
  Company Number: 006527

PATIENT

DRUGS (4)
  1. PLETAL [Suspect]
     Indication: CORONARY ARTERIAL STENT INSERTION
     Dosage: 200 MG, DAILY DOSE ORAL
     Route: 048
  2. PLAVIX [Suspect]
     Dosage: ORAL
     Route: 048
  3. LAMISIL [Suspect]
     Dosage: ORAL
  4. ASPIRIN [Concomitant]

REACTIONS (5)
  - ALANINE AMINOTRANSFERASE INCREASED [None]
  - ASPARTATE AMINOTRANSFERASE INCREASED [None]
  - BLOOD BILIRUBIN INCREASED [None]
  - LYMPHOCYTE STIMULATION TEST POSITIVE [None]
  - MULTI-ORGAN FAILURE [None]
